FAERS Safety Report 8413393-5 (Version None)
Quarter: 2012Q2

REPORT INFORMATION
  Report Type: 
  Country: None (occurrence: None)
  Receive Date: 20120605
  Receipt Date: 20120531
  Transmission Date: 20120825
  Serious: Yes (Death, Hospitalization)
  Sender: FDA-Public Use
  Company Number: PHHY2012JP023941

PATIENT
  Age: 75 Year
  Sex: Male

DRUGS (13)
  1. MICAFUNGIN [Concomitant]
     Dosage: 150 MG, PER DAY
  2. METHOTREXATE [Suspect]
     Indication: RHEUMATOID ARTHRITIS
     Dosage: 10 MG, QW
  3. ANTIBACTERIALS FOR SYSTEMIC USE [Concomitant]
  4. FLUCONAZOLE [Concomitant]
  5. PREDNISOLONE [Suspect]
     Dosage: 30 MG, PER DAY
     Dates: start: 20090201
  6. SULFAMETHOXAZOLE + TRIMETHOPRIM [Concomitant]
     Indication: PNEUMOCYSTIS JIROVECI INFECTION
  7. ALBUMIN (HUMAN) [Concomitant]
  8. AMPICILLIN AND SULBACTAM [Concomitant]
     Indication: BRONCHITIS
     Dosage: 3 G, BID
  9. MEROPENEM [Concomitant]
     Dosage: 0.5 MG, BID
  10. CIPROFLOXACIN [Concomitant]
     Dosage: 300 MG, BID
  11. FUROSEMIDE [Concomitant]
  12. PREDNISOLONE [Suspect]
     Indication: RHEUMATOID ARTHRITIS
     Dosage: 5 MG, DAY
  13. MICAFUNGIN [Concomitant]
     Dosage: 300 MG, PER DAY

REACTIONS (9)
  - TRICHOSPORON INFECTION [None]
  - PANCREATITIS [None]
  - BACK PAIN [None]
  - NEUTROPHIL COUNT DECREASED [None]
  - LUMBAR VERTEBRAL FRACTURE [None]
  - DRUG INEFFECTIVE [None]
  - ANAEMIA [None]
  - RESPIRATORY FAILURE [None]
  - PNEUMONIA ASPIRATION [None]
